FAERS Safety Report 6746855-7 (Version None)
Quarter: 2010Q2

REPORT INFORMATION
  Report Type: 
  Country: None (occurrence: None)
  Receive Date: 20100528
  Receipt Date: 20100517
  Transmission Date: 20101027
  Serious: Yes (Hospitalization, Disabling)
  Sender: FDA-Public Use
  Company Number: US-AMGEN-KDL408040

PATIENT
  Sex: Male

DRUGS (6)
  1. ENBREL [Suspect]
     Indication: PSORIASIS
     Route: 058
     Dates: start: 20030922
  2. HYDROCHLOROTHIAZIDE [Concomitant]
     Route: 048
  3. ATENOLOL [Concomitant]
     Route: 048
  4. ASPIRIN [Concomitant]
     Route: 048
  5. MULTI-VITAMINS [Concomitant]
  6. AMBIEN [Concomitant]

REACTIONS (19)
  - APHASIA [None]
  - ARTERIOSCLEROSIS [None]
  - DRUG INEFFECTIVE [None]
  - DYSPHONIA [None]
  - EPIDIDYMITIS [None]
  - FACIAL PALSY [None]
  - FLANK PAIN [None]
  - FLUSHING [None]
  - HEADACHE [None]
  - HYPOAESTHESIA FACIAL [None]
  - INTRACRANIAL ANEURYSM [None]
  - MIGRAINE [None]
  - MUSCULOSKELETAL PAIN [None]
  - MUSCULOSKELETAL STIFFNESS [None]
  - NEPHROLITHIASIS [None]
  - PSORIASIS [None]
  - RENAL CYST [None]
  - SINUS BRADYCARDIA [None]
  - TRANSIENT ISCHAEMIC ATTACK [None]
